FAERS Safety Report 6240195-0 (Version None)
Quarter: 2009Q2

REPORT INFORMATION
  Report Type: 
  Country: None (occurrence: None)
  Receive Date: 20090623
  Receipt Date: 20081008
  Transmission Date: 20091009
  Serious: No
  Sender: FDA-Public Use
  Company Number: US-ASTRAZENECA-2007UW22936

PATIENT
  Age: 84 Year
  Sex: Female
  Weight: 75.3 kg

DRUGS (33)
  1. PULMICORT RESPULES [Suspect]
     Indication: ASTHMA
     Dosage: 0.5 MG/2ML
     Route: 055
     Dates: start: 20070904
  2. PULMICORT RESPULES [Suspect]
     Indication: BRONCHITIS
     Dosage: 0.5 MG/2ML
     Route: 055
     Dates: start: 20070904
  3. PULMICORT RESPULES [Suspect]
     Indication: CHRONIC OBSTRUCTIVE PULMONARY DISEASE
     Dosage: 0.5 MG/2ML
     Route: 055
     Dates: start: 20070904
  4. PULMICORT RESPULES [Suspect]
     Dosage: 0.5 MG/2ML
     Route: 055
     Dates: start: 20080807
  5. PULMICORT RESPULES [Suspect]
     Dosage: 0.5 MG/2ML
     Route: 055
     Dates: start: 20080807
  6. PULMICORT RESPULES [Suspect]
     Dosage: 0.5 MG/2ML
     Route: 055
     Dates: start: 20080807
  7. PULMICORT RESPULES [Suspect]
     Dosage: 0.5 MG/2ML
     Route: 055
     Dates: start: 20080810
  8. PULMICORT RESPULES [Suspect]
     Dosage: 0.5 MG/2ML
     Route: 055
     Dates: start: 20080810
  9. PULMICORT RESPULES [Suspect]
     Dosage: 0.5 MG/2ML
     Route: 055
     Dates: start: 20080810
  10. PULMICORT RESPULES [Suspect]
     Dosage: 0.5 MG/2ML
     Route: 055
     Dates: start: 20081001
  11. PULMICORT RESPULES [Suspect]
     Dosage: 0.5 MG/2ML
     Route: 055
     Dates: start: 20081001
  12. PULMICORT RESPULES [Suspect]
     Dosage: 0.5 MG/2ML
     Route: 055
     Dates: start: 20081001
  13. ALBUTEROL [Concomitant]
     Dosage: 0.83 %
     Route: 055
  14. ACTONEL [Concomitant]
  15. CENTRUM SILVER [Concomitant]
  16. BORAGE OIL [Concomitant]
  17. OSCAL PLUS D [Concomitant]
  18. VALIUM [Concomitant]
     Indication: INSOMNIA
     Dosage: 2-4 MG
  19. KONYSL [Concomitant]
  20. ASPIRIN [Concomitant]
  21. TRICOR [Concomitant]
  22. POTASSIUM CHLORIDE [Concomitant]
  23. COMBIVENT [Concomitant]
  24. REGLAN [Concomitant]
  25. PRILOSEC OTC [Concomitant]
  26. THEOPHYLLINE [Concomitant]
  27. LASIX [Concomitant]
  28. SINGULAIR [Concomitant]
  29. HYCODAN [Concomitant]
  30. COZAAR [Concomitant]
  31. PREDNISONE TAB [Concomitant]
  32. SLOW FE [Concomitant]
  33. ASCORBIC ACID [Concomitant]

REACTIONS (13)
  - ABDOMINAL DISTENSION [None]
  - ASTHMA [None]
  - DIVERTICULUM [None]
  - DYSPHONIA [None]
  - GASTRITIS [None]
  - HIATUS HERNIA [None]
  - HUNGER [None]
  - HYPOGLYCAEMIA [None]
  - INCREASED APPETITE [None]
  - JOINT SWELLING [None]
  - MEDICATION ERROR [None]
  - SPEECH DISORDER [None]
  - WEIGHT INCREASED [None]
